FAERS Safety Report 11431747 (Version 2)
Quarter: 2015Q3

REPORT INFORMATION
  Report Type: Spontaneous
  Country: NL (occurrence: NL)
  Receive Date: 20150828
  Receipt Date: 20150904
  Transmission Date: 20151125
  Serious: Yes (Hospitalization)
  Sender: FDA-Public Use
  Company Number: NL-PFIZER INC-2015281560

PATIENT
  Age: 78 Year
  Sex: Female
  Weight: 110 kg

DRUGS (12)
  1. HYDROCORTISONE. [Concomitant]
     Active Substance: HYDROCORTISONE
     Dosage: 5 MG, UNK
     Route: 048
  2. CALCIUMCARBONAAT [Concomitant]
     Dosage: UNK, 1X/DAY
     Route: 048
  3. SIMVASTATINE [Concomitant]
     Active Substance: SIMVASTATIN
     Dosage: 20 MG, 1X/DAY
     Route: 048
  4. FLUCLOXACILLINE /00239101/ [Concomitant]
     Dosage: UNK
     Route: 048
  5. LEVOTHYROXINE. [Concomitant]
     Active Substance: LEVOTHYROXINE
     Dosage: 100 ?G, 1X/DAY
     Route: 048
  6. OCTREOTIDE. [Concomitant]
     Active Substance: OCTREOTIDE
     Dosage: 1 DF, UNK
     Route: 058
  7. LACTULOSE. [Concomitant]
     Active Substance: LACTULOSE
     Dosage: 15 ML, 2X/DAY
     Route: 048
  8. METOPROLOL SUCCINATE. [Concomitant]
     Active Substance: METOPROLOL SUCCINATE
     Dosage: 200 MG, 1X/DAY
     Route: 048
  9. ENALAPRIL [Concomitant]
     Active Substance: ENALAPRIL
     Dosage: 5 MG, 1X/DAY
     Route: 048
  10. HYDROCORTISONE. [Concomitant]
     Active Substance: HYDROCORTISONE
     Dosage: 20 MG, 1X/DAY
     Route: 048
  11. LEVOTHYROXINE. [Concomitant]
     Active Substance: LEVOTHYROXINE
     Dosage: 100 ?G, 2X/DAY
     Route: 048
  12. SOMAVERT [Suspect]
     Active Substance: PEGVISOMANT
     Indication: ACROMEGALY
     Dosage: 20 MG, 2X/WEEK
     Route: 058
     Dates: start: 20041229

REACTIONS (8)
  - General physical condition abnormal [Recovered/Resolved]
  - Arthralgia [Recovered/Resolved]
  - Labile blood pressure [Recovered/Resolved]
  - Pyrexia [Recovered/Resolved]
  - Pain in extremity [Recovered/Resolved]
  - Confusional state [Recovered/Resolved]
  - Bacterial infection [Recovered/Resolved]
  - Back pain [Recovered/Resolved]
